FAERS Safety Report 5485776-7 (Version None)
Quarter: 2007Q4

REPORT INFORMATION
  Report Type: 
  Country: None (occurrence: None)
  Receive Date: 20071015
  Receipt Date: 20071009
  Transmission Date: 20080405
  Serious: Yes (Death, Life-Threatening, Hospitalization, Disabling, Other)
  Sender: FDA-Public Use
  Company Number: DE-BRISTOL-MYERS SQUIBB COMPANY-13934526

PATIENT
  Age: 52 Year
  Sex: Male

DRUGS (14)
  1. CISPLATIN [Suspect]
     Dosage: FIRST CYCLE ON 10-OCT-2005
     Dates: start: 20051104
  2. PALIFERMIN [Suspect]
     Dosage: FIRST DOSE ON 07-OCT-2007, 3 DOSES IN THE SAME MONTH AND FIFTH DOSE ON 04-NOV-2005
     Route: 042
     Dates: start: 20051104
  3. MANNITOL [Concomitant]
     Dates: start: 20051010, end: 20051104
  4. SODIUM CHLORIDE 0.9% [Concomitant]
     Dates: start: 20051010, end: 20051104
  5. PARACETAMOL [Concomitant]
     Route: 054
     Dates: start: 20051123, end: 20051128
  6. METOCLOPRAMIDE HCL [Concomitant]
     Route: 048
     Dates: start: 20051123, end: 20051123
  7. DEXAMETHASONE 0.5MG TAB [Concomitant]
     Route: 042
     Dates: start: 20051010, end: 20051104
  8. DOLASETRON MESILATE [Concomitant]
     Route: 042
     Dates: start: 20051010, end: 20051104
  9. FUROSEMIDE [Concomitant]
     Route: 048
     Dates: start: 20051110, end: 20051201
  10. AMPHO-MORONAL [Concomitant]
     Route: 048
     Dates: start: 20051107, end: 20051201
  11. DIMETINDENE MALEATE [Concomitant]
     Route: 048
     Dates: start: 20051201, end: 20051201
  12. METAMIZOLE SODIUM [Concomitant]
     Route: 048
     Dates: start: 20051103, end: 20051201
  13. TRAMADOL HCL [Concomitant]
     Route: 048
     Dates: start: 20051104, end: 20051201
  14. DURAGESIC-100 [Concomitant]
     Route: 062
     Dates: start: 20051115, end: 20051201

REACTIONS (8)
  - BLOOD CREATININE INCREASED [None]
  - C-REACTIVE PROTEIN INCREASED [None]
  - LEUKOPENIA [None]
  - MULTI-ORGAN FAILURE [None]
  - RED BLOOD CELL COUNT INCREASED [None]
  - SEPTIC SHOCK [None]
  - STAPHYLOCOCCAL SEPSIS [None]
  - WHITE BLOOD CELL COUNT INCREASED [None]
